FAERS Safety Report 5523696-X (Version None)
Quarter: 2007Q4

REPORT INFORMATION
  Report Type: 
  Country: None (occurrence: None)
  Receive Date: 20071121
  Receipt Date: 20071109
  Transmission Date: 20080405
  Serious: Yes (Other)
  Sender: FDA-Public Use
  Company Number: GB-BRISTOL-MYERS SQUIBB COMPANY-13977814

PATIENT
  Age: 77 Year
  Sex: Female

DRUGS (5)
  1. DASATINIB [Suspect]
     Indication: CHRONIC MYELOID LEUKAEMIA
     Dosage: 100 UNIT NOT GIVEN
     Dates: start: 20060322
  2. FLUCLOXACILLIN [Concomitant]
     Dates: start: 20061123
  3. GAVISCON [Concomitant]
     Dates: start: 20060712
  4. CODEINE SUL TAB [Concomitant]
     Dates: start: 20070719
  5. IRON SULFATETHIAMIN COMPOUND TAB [Concomitant]
     Dates: start: 20070905, end: 20071028

REACTIONS (1)
  - SQUAMOUS CELL CARCINOMA [None]
